FAERS Safety Report 7494585-9 (Version None)
Quarter: 2011Q2

REPORT INFORMATION
  Report Type: 
  Country: None (occurrence: None)
  Receive Date: 20110520
  Receipt Date: 20110510
  Transmission Date: 20111010
  Serious: Yes (Other)
  Sender: FDA-Public Use
  Company Number: PHHY2011FI39953

PATIENT
  Age: 40 Year
  Sex: Male

DRUGS (4)
  1. CLOZAPINE [Suspect]
     Dates: start: 20020101
  2. DEPRAKINE [Concomitant]
     Dosage: 1300 MG
  3. CLOZAPINE [Suspect]
     Dosage: 300 MG, QD
  4. CLOZAPINE [Suspect]
     Dosage: 800 MG, QD

REACTIONS (4)
  - ELECTROCARDIOGRAM T WAVE INVERSION [None]
  - SINUS TACHYCARDIA [None]
  - ELECTROCARDIOGRAM ST-T SEGMENT DEPRESSION [None]
  - BRAIN NATRIURETIC PEPTIDE INCREASED [None]
